FAERS Safety Report 25711945 (Version 2)
Quarter: 2025Q3

REPORT INFORMATION
  Report Type: Spontaneous
  Country: GB (occurrence: GB)
  Receive Date: 20250821
  Receipt Date: 20250902
  Transmission Date: 20251021
  Serious: Yes (Death, Hospitalization, Other)
  Sender: MYLAN
  Company Number: GB-MYLANLABS-2025M1070091

PATIENT
  Sex: Male

DRUGS (1)
  1. CLOZAPINE [Suspect]
     Active Substance: CLOZAPINE
     Indication: Schizophrenia

REACTIONS (5)
  - Death [Fatal]
  - Lower respiratory tract infection [Unknown]
  - Illness [Unknown]
  - Dysphagia [Unknown]
  - Leukocytosis [Unknown]
